FAERS Safety Report 4705333-7 (Version None)
Quarter: 2005Q2

REPORT INFORMATION
  Report Type: 
  Country: None (occurrence: None)
  Receive Date: 20050629
  Receipt Date: 20050616
  Transmission Date: 20051028
  Serious: Yes (Life-Threatening, Hospitalization)
  Sender: FDA-Public Use
  Company Number: 2005-BP-10139RO

PATIENT
  Age: 54 Year
  Sex: Male

DRUGS (4)
  1. COCAINE HCL TOPICAL SOLUTION, 4% (COCAINE) [Suspect]
     Indication: ANAESTHESIA
     Dosage: 4 % SOLUTION (SEE TEXT,ONCE),TO
     Dates: start: 20050615, end: 20050615
  2. 1 % LIDOCAINE W/EPINEPHRINE (OCTOCAINE WITH EPINEPHRINE) [Suspect]
     Indication: LOCAL ANAESTHESIA
     Dosage: (SEE TEXT,ONCE),IN
     Dates: start: 20050615, end: 20050615
  3. UNSPECIFIED GENERAL ANESTHETICS [Suspect]
     Indication: ANAESTHESIA
     Dates: start: 20050615, end: 20050615
  4. UNSPECIFIED BETA BLOCKER [Suspect]
     Indication: HYPERTENSION
     Dates: start: 20050615, end: 20050615

REACTIONS (3)
  - ATRIAL HYPERTROPHY [None]
  - CARDIAC ARREST [None]
  - TRICUSPID VALVE INCOMPETENCE [None]
